FAERS Safety Report 8774704 (Version 3)
Quarter: 2012Q4

REPORT INFORMATION
  Report Type: 
  Country: US (occurrence: US)
  Receive Date: 20120910
  Receipt Date: 20121023
  Transmission Date: 20130627
  Serious: Yes (Death)
  Sender: FDA-Public Use
  Company Number: US-PFIZER INC-2012218860

PATIENT
  Age: 62 Year
  Sex: Female

DRUGS (1)
  1. INLYTA [Suspect]
     Indication: RENAL CANCER
     Dosage: 5 mg, 2x/day
     Route: 048
     Dates: start: 20120814

REACTIONS (6)
  - Death [Fatal]
  - Fatigue [Unknown]
  - Muscular weakness [Unknown]
  - Dysphonia [Unknown]
  - Dyspnoea [Unknown]
  - Malaise [Unknown]
